FAERS Safety Report 18072336 (Version 1)
Quarter: 2020Q3

REPORT INFORMATION
  Report Type: Spontaneous
  Country: US (occurrence: US)
  Receive Date: 20200727
  Receipt Date: 20200727
  Transmission Date: 20201103
  Serious: Yes (Disabling, Other)
  Sender: FDA-Public Use
  Company Number: US-REGENERON PHARMACEUTICALS, INC.-2020-46650

PATIENT

DRUGS (2)
  1. EYLEA [Suspect]
     Active Substance: AFLIBERCEPT
     Dosage: 2 MG, Q4W; OD
     Route: 031
     Dates: start: 20200622, end: 20200622
  2. EYLEA [Suspect]
     Active Substance: AFLIBERCEPT
     Indication: SWELLING
     Dosage: 2 UNK, UNK
     Route: 031
     Dates: start: 20200504

REACTIONS (3)
  - Blindness transient [Recovering/Resolving]
  - Vitritis [Recovered/Resolved]
  - Off label use [Unknown]

NARRATIVE: CASE EVENT DATE: 20200622
